FAERS Safety Report 8619728 (Version 3)
Quarter: 2012Q4

REPORT INFORMATION
  Report Type: 
  Country: US (occurrence: US)
  Receive Date: 20120618
  Receipt Date: 20121019
  Transmission Date: 20130627
  Serious: Yes (Other)
  Sender: FDA-Public Use
  Company Number: US-ROCHE-1078158

PATIENT
  Sex: Female
  Weight: 49.94 kg

DRUGS (2)
  1. ACCUTANE [Suspect]
     Indication: ACNE
     Route: 065
     Dates: start: 20040621, end: 20060930
  2. ACCUTANE [Suspect]
     Dosage: 40 mg alternate with 80 mg
     Route: 065
     Dates: start: 20041021

REACTIONS (5)
  - Crohn^s disease [Unknown]
  - Inflammatory bowel disease [Unknown]
  - Stress [Unknown]
  - Splenomegaly [Unknown]
  - Injury [Unknown]
